FAERS Safety Report 21637643 (Version 1)
Quarter: 2022Q4

REPORT INFORMATION
  Report Type: Spontaneous
  Country: US (occurrence: US)
  Receive Date: 20221124
  Receipt Date: 20221124
  Transmission Date: 20230113
  Serious: No
  Sender: FDA-Public Use
  Company Number: US-ORGANON-O2211USA002046

PATIENT
  Sex: Female

DRUGS (4)
  1. FOLLISTIM AQ [Suspect]
     Active Substance: FOLLITROPIN
     Dosage: 225 UNITS; STRENGTH: 300IU/0.36ML
     Route: 058
     Dates: start: 20221109
  2. FOLLISTIM AQ [Suspect]
     Active Substance: FOLLITROPIN
     Dosage: STRENGTH AND DOSE; 900IU/1.08ML
     Route: 058
     Dates: start: 20221109
  3. IBUPROFEN [Concomitant]
     Active Substance: IBUPROFEN
  4. OVIDREL [Concomitant]
     Active Substance: CHORIOGONADOTROPIN ALFA
     Dosage: STRENGTH: 250MCG/0.5ML

REACTIONS (2)
  - Pelvic discomfort [Unknown]
  - Abdominal discomfort [Unknown]

NARRATIVE: CASE EVENT DATE: 20220101
